FAERS Safety Report 24912186 (Version 7)
Quarter: 2025Q4

REPORT INFORMATION
  Report Type: Spontaneous
  Country: US (occurrence: US)
  Receive Date: 20250131
  Receipt Date: 20251219
  Transmission Date: 20260117
  Serious: Yes (Hospitalization, Disabling, Other)
  Sender: SANOFI AVENTIS
  Company Number: US-SANOFI-02389342

PATIENT
  Age: 60 Year
  Sex: Male
  Weight: 75 kg

DRUGS (19)
  1. DUPIXENT [Suspect]
     Active Substance: DUPILUMAB
     Indication: Asthma
     Dosage: 300 MG
     Route: 065
     Dates: start: 2024, end: 202405
  2. DUPIXENT [Suspect]
     Active Substance: DUPILUMAB
     Dosage: 300 MG
     Route: 065
     Dates: start: 2024, end: 202412
  3. DUPIXENT [Suspect]
     Active Substance: DUPILUMAB
     Dosage: 300 MG, QOW
     Route: 058
     Dates: end: 202501
  4. LYRICA [Suspect]
     Active Substance: PREGABALIN
     Dosage: UNK
     Route: 065
  5. KETOROLAC [Suspect]
     Active Substance: KETOROLAC TROMETHAMINE
     Dosage: UNK
     Route: 065
  6. CELEBREX [Concomitant]
     Active Substance: CELECOXIB
     Dosage: UNK
  7. AZITHROMYCIN [Concomitant]
     Active Substance: AZITHROMYCIN
     Dosage: UNK UNK, QD
  8. ALBUTEROL SULFATE [Concomitant]
     Active Substance: ALBUTEROL SULFATE
     Dosage: UNK UNK, QID
  9. BROVANA [Concomitant]
     Active Substance: ARFORMOTEROL TARTRATE
     Dosage: UNK
  10. PREDNISONE [Concomitant]
     Active Substance: PREDNISONE
     Dosage: UNK
  11. FENTANYL [Concomitant]
     Active Substance: FENTANYL
     Dosage: UNK
  12. MOUNJARO [Concomitant]
     Active Substance: TIRZEPATIDE
     Dosage: UNK
  13. TORADOL [Concomitant]
     Active Substance: KETOROLAC TROMETHAMINE
     Dosage: UNK
  14. METFORMIN [Concomitant]
     Active Substance: METFORMIN HYDROCHLORIDE
  15. LASIX [Concomitant]
     Active Substance: FUROSEMIDE
  16. POTASSIUM [Concomitant]
     Active Substance: POTASSIUM
  17. ALBUTEROL SULFATE [Concomitant]
     Active Substance: ALBUTEROL SULFATE
  18. GUAIFENESIN [Concomitant]
     Active Substance: GUAIFENESIN
  19. CENTRUM ADULTS [Concomitant]

REACTIONS (31)
  - Sepsis [Not Recovered/Not Resolved]
  - Disability [Not Recovered/Not Resolved]
  - Suicidal ideation [Not Recovered/Not Resolved]
  - Near death experience [Unknown]
  - Systemic inflammatory response syndrome [Not Recovered/Not Resolved]
  - Dysphagia [Not Recovered/Not Resolved]
  - Lacrimation increased [Not Recovered/Not Resolved]
  - Renal disorder [Not Recovered/Not Resolved]
  - Ataxia [Not Recovered/Not Resolved]
  - Blood pressure abnormal [Not Recovered/Not Resolved]
  - Sleep disorder due to a general medical condition [Not Recovered/Not Resolved]
  - Gait inability [Not Recovered/Not Resolved]
  - Heart rate increased [Not Recovered/Not Resolved]
  - Movement disorder [Not Recovered/Not Resolved]
  - Pain in extremity [Not Recovered/Not Resolved]
  - Pain [Not Recovered/Not Resolved]
  - Mental disorder due to a general medical condition [Not Recovered/Not Resolved]
  - Groin pain [Not Recovered/Not Resolved]
  - Myalgia [Not Recovered/Not Resolved]
  - Injection site mass [Not Recovered/Not Resolved]
  - Headache [Not Recovered/Not Resolved]
  - Conjunctivitis [Not Recovered/Not Resolved]
  - Injection site pain [Not Recovered/Not Resolved]
  - Rash [Not Recovered/Not Resolved]
  - Arthralgia [Not Recovered/Not Resolved]
  - Asthma [Not Recovered/Not Resolved]
  - Device issue [Unknown]
  - Incorrect route of product administration [Unknown]
  - Drug ineffective [Unknown]
  - Drug effect less than expected [Unknown]
  - Product with quality issue administered [Unknown]

NARRATIVE: CASE EVENT DATE: 20240101
